FAERS Safety Report 15612361 (Version 2)
Quarter: 2018Q4

REPORT INFORMATION
  Report Type: Report from Study
  Country: FR (occurrence: FR)
  Receive Date: 20181113
  Receipt Date: 20181126
  Transmission Date: 20190205
  Serious: Yes (Other)
  Sender: FDA-Public Use
  Company Number: FR-ASTELLAS-2018US048506

PATIENT
  Age: 52 Year
  Sex: Female
  Weight: 107 kg

DRUGS (5)
  1. CORTANCYL [Concomitant]
     Active Substance: PREDNISONE
     Indication: GOUT
     Dosage: 40 (UNKNOWN DOSE), DAILY
     Route: 065
     Dates: start: 201708, end: 201709
  2. TACROLIMUS. [Suspect]
     Active Substance: TACROLIMUS
     Indication: RENAL TRANSPLANT
     Dosage: 3 (UNITS NOT PROVIDED), ONCE DAILY
     Route: 065
     Dates: start: 20160319
  3. SOLUPRED                           /00016201/ [Concomitant]
     Active Substance: PREDNISOLONE
     Indication: IMMUNOSUPPRESSION
     Dosage: 20 (UNKNOWN UNIT), DAILY
     Route: 065
     Dates: start: 20160326, end: 20170803
  4. SOLUPRED                           /00016201/ [Concomitant]
     Active Substance: PREDNISOLONE
     Dosage: 7.5 (UNKNOWN UNIT), DAILY
     Route: 065
     Dates: start: 20170804, end: 201708
  5. CELLCEPT [Concomitant]
     Active Substance: MYCOPHENOLATE MOFETIL\MYCOPHENOLATE MOFETIL HYDROCHLORIDE
     Indication: IMMUNOSUPPRESSION
     Dosage: 1000 (UNKNOWN UNIT), DAILY
     Route: 065
     Dates: start: 20160319, end: 201712

REACTIONS (9)
  - Tachyarrhythmia [Recovered/Resolved]
  - Atrial fibrillation [Recovered/Resolved]
  - Gout [Unknown]
  - Anaemia [Unknown]
  - Diarrhoea [Recovered/Resolved]
  - Tremor [Recovered/Resolved]
  - Gastrointestinal disorder [Unknown]
  - Renal impairment [Not Recovered/Not Resolved]
  - Nausea [Recovered/Resolved]

NARRATIVE: CASE EVENT DATE: 20170813
